FAERS Safety Report 4873874-8 (Version None)
Quarter: 2006Q1

REPORT INFORMATION
  Report Type: 
  Country: None (occurrence: None)
  Receive Date: 20060104
  Receipt Date: 20051209
  Transmission Date: 20060701
  Serious: Yes (Other)
  Sender: FDA-Public Use
  Company Number: US200512001863

PATIENT
  Age: 79 Year
  Sex: Female
  Weight: 37.6 kg

DRUGS (2)
  1. FORTEO [Suspect]
     Dates: start: 20050701
  2. FORTEO PEN (FORTEO PEN) PEN, DISPOSABLE [Concomitant]

REACTIONS (1)
  - WEIGHT DECREASED [None]
